FAERS Safety Report 6440683-8 (Version None)
Quarter: 2009Q4

REPORT INFORMATION
  Report Type: 
  Country: None (occurrence: None)
  Receive Date: 20091116
  Receipt Date: 20091104
  Transmission Date: 20100525
  Serious: Yes (Hospitalization)
  Sender: FDA-Public Use
  Company Number: US-BIOGENIDEC-2005BI019548

PATIENT
  Sex: Female

DRUGS (2)
  1. AVONEX [Suspect]
     Indication: MULTIPLE SCLEROSIS
     Route: 030
     Dates: start: 19980501, end: 20030101
  2. AVONEX [Suspect]
     Route: 030
     Dates: start: 20030101

REACTIONS (6)
  - FALL [None]
  - HIP FRACTURE [None]
  - MULTIPLE SCLEROSIS [None]
  - MUSCLE SPASMS [None]
  - MUSCULAR WEAKNESS [None]
  - OSTEOPOROSIS [None]
